FAERS Safety Report 5262107-9 (Version None)
Quarter: 2007Q1

REPORT INFORMATION
  Report Type: 
  Country: None (occurrence: None)
  Receive Date: 20070311
  Receipt Date: 20070228
  Transmission Date: 20070707
  Serious: Yes (Other)
  Sender: FDA-Public Use
  Company Number: 2006UW21019

PATIENT
  Age: 407 Month
  Sex: Male
  Weight: 222.7 kg

DRUGS (1)
  1. SEROQUEL [Suspect]
     Indication: DEPRESSION
     Route: 048
     Dates: start: 20010808

REACTIONS (6)
  - DIABETES MELLITUS [None]
  - DIABETIC COMPLICATION [None]
  - EYE DISORDER [None]
  - INJURY [None]
  - PROSTATE EXAMINATION ABNORMAL [None]
  - SLEEP APNOEA SYNDROME [None]
